FAERS Safety Report 19508209 (Version 1)
Quarter: 2021Q3

REPORT INFORMATION
  Report Type: Other
  Country: TW (occurrence: TW)
  Receive Date: 20210708
  Receipt Date: 20210708
  Transmission Date: 20211014
  Serious: Yes (Hospitalization, Other)
  Sender: FDA-Public Use
  Company Number: TW-APPCO PHARMA LLC-2113610

PATIENT
  Age: 57 Year
  Sex: Female

DRUGS (1)
  1. METRONIDAZOLE. [Suspect]
     Active Substance: METRONIDAZOLE
     Indication: VAGINAL INFECTION
     Route: 065

REACTIONS (3)
  - Myelitis [Not Recovered/Not Resolved]
  - Optic neuropathy [Not Recovered/Not Resolved]
  - Condition aggravated [Not Recovered/Not Resolved]
